FAERS Safety Report 9368145 (Version 1)
Quarter: 2013Q2

REPORT INFORMATION
  Report Type: Spontaneous
  Country: US (occurrence: US)
  Receive Date: 20130625
  Receipt Date: 20130625
  Transmission Date: 20140414
  Serious: No
  Sender: FDA-Public Use
  Company Number: US-TEVA-414806USA

PATIENT
  Sex: Female

DRUGS (9)
  1. COPAXONE [Suspect]
     Indication: RELAPSING-REMITTING MULTIPLE SCLEROSIS
     Dates: start: 200410, end: 20130608
  2. FLAXSEED OIL [Concomitant]
  3. GLUCOSAMINE W/CHONDROITIN SULFATE [Concomitant]
  4. NORVASC [Concomitant]
  5. ZETIA [Concomitant]
  6. VITAMIN B [Concomitant]
  7. VITAMIN C [Concomitant]
  8. VITAMIN D [Concomitant]
  9. VITAMIN E [Concomitant]

REACTIONS (4)
  - Skin haemorrhage [Unknown]
  - Rash maculo-papular [Unknown]
  - Rash pruritic [Unknown]
  - Rash generalised [Unknown]
